FAERS Safety Report 24037579 (Version 3)
Quarter: 2024Q4

REPORT INFORMATION
  Report Type: Spontaneous
  Country: US (occurrence: US)
  Receive Date: 20240702
  Receipt Date: 20241014
  Transmission Date: 20250115
  Serious: Yes (Other)
  Sender: NOVO NORDISK
  Company Number: US-NOVOPROD-1245428

PATIENT
  Sex: Male

DRUGS (1)
  1. INSULIN ASPART PROTAMINE AND INSULIN ASPART [Suspect]
     Active Substance: INSULIN ASPART
     Indication: Product used for unknown indication
     Dosage: 45 IU, QD (25  IU IN THE MORNING AND 20 IU AT NIGHT)
     Route: 058

REACTIONS (3)
  - Blood glucose increased [Unknown]
  - Device failure [Unknown]
  - Drug dose omission by device [Unknown]
